FAERS Safety Report 4919327-X (Version None)
Quarter: 2006Q1

REPORT INFORMATION
  Report Type: 
  Country: None (occurrence: None)
  Receive Date: 20060113
  Receipt Date: 20051208
  Transmission Date: 20060701
  Serious: No
  Sender: FDA-Public Use
  Company Number: 2005SP004325

PATIENT
  Age: 78 Year
  Sex: Male
  Weight: 56.6996 kg

DRUGS (5)
  1. LUNESTA [Suspect]
     Dosage: 3 MG; HS; ORAL
     Route: 048
     Dates: start: 20051206, end: 20051201
  2. NITROGLYCERIN [Concomitant]
  3. SIMVASTATIN [Concomitant]
  4. LORAZEPAM [Concomitant]
  5. ANTIHYPERTENSIVES [Concomitant]

REACTIONS (2)
  - DRUG INEFFECTIVE [None]
  - INITIAL INSOMNIA [None]
